FAERS Safety Report 26082043 (Version 1)
Quarter: 2025Q4

REPORT INFORMATION
  Report Type: Spontaneous
  Country: CA (occurrence: CA)
  Receive Date: 20251124
  Receipt Date: 20251124
  Transmission Date: 20260117
  Serious: Yes (Other)
  Sender: APOTEX
  Company Number: CA-PGRTD-E2B_08162669

PATIENT
  Age: 24 Year
  Sex: Female

DRUGS (11)
  1. TRAZODONE [Suspect]
     Active Substance: TRAZODONE HYDROCHLORIDE
     Indication: Product used for unknown indication
     Route: 065
  2. PANTOPRAZOLE SODIUM [Suspect]
     Active Substance: PANTOPRAZOLE SODIUM
     Indication: Product used for unknown indication
     Route: 065
  3. PREDNISONE [Suspect]
     Active Substance: PREDNISONE
     Indication: Product used for unknown indication
     Dosage: 1 EVERY 1 DAYS
     Route: 065
  4. PREDNISONE [Suspect]
     Active Substance: PREDNISONE
     Route: 065
  5. VENLAFAXINE HYDROCHLORIDE [Suspect]
     Active Substance: VENLAFAXINE HYDROCHLORIDE
     Indication: Major depression
     Route: 065
  6. VENLAFAXINE HYDROCHLORIDE [Suspect]
     Active Substance: VENLAFAXINE HYDROCHLORIDE
     Indication: Generalised anxiety disorder
  7. IRON [Suspect]
     Active Substance: IRON
     Indication: Anaemia
  8. ONDANSETRON HYDROCHLORIDE [Suspect]
     Active Substance: ONDANSETRON HYDROCHLORIDE
     Indication: Product used for unknown indication
     Dosage: 1 EVERY 1 DAYS
     Route: 065
  9. ETRASIMOD [Suspect]
     Active Substance: ETRASIMOD
     Indication: Colitis ulcerative
     Dosage: 1 EVERY 1 DAYS
  10. MESALAMINE [Suspect]
     Active Substance: MESALAMINE
     Indication: Colitis ulcerative
  11. ENTOCORT [Concomitant]
     Active Substance: BUDESONIDE
     Indication: Colitis ulcerative

REACTIONS (12)
  - C-reactive protein increased [Recovered/Resolved]
  - Serum ferritin decreased [Recovered/Resolved]
  - Anaemia [Recovered/Resolved]
  - Concomitant disease aggravated [Recovered/Resolved]
  - Colitis ulcerative [Recovered/Resolved]
  - Lack of concomitant drug effect [Recovered/Resolved]
  - Swelling face [Recovered/Resolved]
  - Labelled drug-drug interaction issue [Recovered/Resolved]
  - Nausea [Recovered/Resolved]
  - Acne [Recovered/Resolved]
  - Weight increased [Recovered/Resolved]
  - Dizziness [Recovered/Resolved]
